FAERS Safety Report 7784004-7 (Version None)
Quarter: 2011Q3

REPORT INFORMATION
  Report Type: 
  Country: None (occurrence: None)
  Receive Date: 20110928
  Receipt Date: 20110916
  Transmission Date: 20111222
  Serious: Yes (Hospitalization)
  Sender: FDA-Public Use
  Company Number: US-JNJFOC-20110910354

PATIENT
  Age: 57 Year
  Sex: Male

DRUGS (5)
  1. EXTRA STRENGTH TYLENOL [Suspect]
     Indication: PAIN
     Dosage: 100MG 2-4 TIMES A DAY
     Route: 048
     Dates: start: 20090101
  2. EXTRA STRENGTH TYLENOL [Suspect]
     Route: 048
  3. ASPIRIN [Concomitant]
     Indication: INTRACARDIAC THROMBUS
     Route: 065
  4. EXTRA STRENGTH TYLENOL PM [Suspect]
     Indication: INSOMNIA
     Dosage: AS NEEDED
     Route: 048
  5. EXTRA STRENGTH TYLENOL PM [Suspect]
     Indication: PAIN
     Dosage: AS NEEDED
     Route: 048

REACTIONS (9)
  - ERUCTATION [None]
  - ABDOMINAL PAIN UPPER [None]
  - NAUSEA [None]
  - WEIGHT DECREASED [None]
  - DIARRHOEA [None]
  - PRODUCT ODOUR ABNORMAL [None]
  - OCULAR ICTERUS [None]
  - LACRIMATION INCREASED [None]
  - RHINORRHOEA [None]
